FAERS Safety Report 5759931-2 (Version None)
Quarter: 2008Q2

REPORT INFORMATION
  Report Type: 
  Country: None (occurrence: None)
  Receive Date: 20080605
  Receipt Date: 20080602
  Transmission Date: 20081010
  Serious: Yes (Life-Threatening)
  Sender: FDA-Public Use
  Company Number: US-MERCK-0806USA00332

PATIENT
  Age: 79 Year
  Sex: Female

DRUGS (1)
  1. SINGULAIR [Suspect]
     Indication: RHINITIS ALLERGIC
     Route: 048
     Dates: start: 20080201, end: 20080101

REACTIONS (1)
  - SUICIDAL IDEATION [None]
